FAERS Safety Report 10557704 (Version 2)
Quarter: 2014Q4

REPORT INFORMATION
  Report Type: Spontaneous
  Country: US (occurrence: US)
  Receive Date: 20141031
  Receipt Date: 20141223
  Transmission Date: 20150529
  Serious: Yes (Hospitalization, Other)
  Sender: FDA-Public Use
  Company Number: US-BAYER-2014-160598

PATIENT
  Age: 19 Year
  Sex: Female
  Weight: 74.38 kg

DRUGS (3)
  1. MIRENA [Suspect]
     Active Substance: LEVONORGESTREL
     Indication: CONTRACEPTION
     Dosage: 20 MCG/24HR, CONT
     Route: 015
     Dates: start: 20100216, end: 20110425
  2. ACETAMINOPHEN W/HYDROCODONE [Concomitant]
     Active Substance: ACETAMINOPHEN\HYDROCODONE
     Indication: LYMPH NODE ABSCESS
     Dosage: UNK
     Route: 048
     Dates: start: 20110409
  3. BACTRIM [Concomitant]
     Active Substance: SULFAMETHOXAZOLE\TRIMETHOPRIM
     Indication: LYMPH NODE ABSCESS
     Dosage: UNK
     Route: 048
     Dates: start: 20110409

REACTIONS (14)
  - Device dislocation [None]
  - Genital haemorrhage [None]
  - Uterine perforation [None]
  - Pelvic pain [None]
  - Abdominal pain [None]
  - Anxiety [None]
  - Depression [None]
  - Emotional distress [None]
  - Device issue [None]
  - Injury [None]
  - Depressed mood [None]
  - Medical device discomfort [None]
  - Fear [None]
  - Internal injury [None]

NARRATIVE: CASE EVENT DATE: 201002
